FAERS Safety Report 8256429-7 (Version None)
Quarter: 2012Q2

REPORT INFORMATION
  Report Type: 
  Country: None (occurrence: None)
  Receive Date: 20120403
  Receipt Date: 20120328
  Transmission Date: 20120825
  Serious: Yes (Other)
  Sender: FDA-Public Use
  Company Number: GB-PFIZER INC-2012079286

PATIENT
  Age: 60 Year
  Sex: Male

DRUGS (1)
  1. PREGABALIN [Suspect]
     Dosage: 150 MG, 2X/DAY

REACTIONS (3)
  - FALL [None]
  - PARANOIA [None]
  - SOMNOLENCE [None]
